FAERS Safety Report 18240550 (Version 2)
Quarter: 2025Q2

REPORT INFORMATION
  Report Type: Spontaneous
  Country: US (occurrence: US)
  Receive Date: 20200908
  Receipt Date: 20250619
  Transmission Date: 20250716
  Serious: Yes (Hospitalization)
  Sender: AUROBINDO
  Company Number: US-AUROBINDO-AUR-APL-2020-046964

PATIENT
  Age: 31 Year
  Sex: Female

DRUGS (1)
  1. POTASSIUM CHLORIDE [Suspect]
     Active Substance: POTASSIUM CHLORIDE
     Indication: Hypokalaemia
     Route: 065

REACTIONS (3)
  - Myotonia [Recovered/Resolved]
  - Muscle spasms [Recovered/Resolved]
  - Muscle contractions involuntary [Recovered/Resolved]
